FAERS Safety Report 5842866-4 (Version None)
Quarter: 2008Q3

REPORT INFORMATION
  Report Type: 
  Country: None (occurrence: None)
  Receive Date: 20080813
  Receipt Date: 20080808
  Transmission Date: 20090109
  Serious: Yes (Hospitalization, Other)
  Sender: FDA-Public Use
  Company Number: US-CELGENEUS-163-21880-08070936

PATIENT
  Age: 57 Year
  Sex: Male
  Weight: 90.2 kg

DRUGS (2)
  1. REVLIMID [Suspect]
     Indication: MULTIPLE MYELOMA
     Route: 048
     Dates: start: 20060609, end: 20060912
  2. DECADRON SRC [Suspect]
     Indication: MULTIPLE MYELOMA
     Route: 048
     Dates: start: 20060609, end: 20060907

REACTIONS (2)
  - MUSCULAR WEAKNESS [None]
  - PLASMACYTOMA [None]
